FAERS Safety Report 4501906-5 (Version None)
Quarter: 2004Q4

REPORT INFORMATION
  Report Type: 
  Country: None (occurrence: None)
  Receive Date: 20041115
  Receipt Date: 20041115
  Transmission Date: 20050328
  Serious: Yes (Other)
  Sender: FDA-Public Use
  Company Number: None

PATIENT
  Age: 17 Year
  Sex: Female

DRUGS (4)
  1. PPD [Suspect]
     Dosage: L FOREARM ID
     Route: 023
     Dates: start: 20040910
  2. ADDERALL 10 [Concomitant]
  3. ABILIFY [Concomitant]
  4. TRILIPTAL [Concomitant]

REACTIONS (2)
  - ERYTHEMA [None]
  - PRURITUS [None]
